FAERS Safety Report 15522858 (Version 1)
Quarter: 2018Q4

REPORT INFORMATION
  Report Type: Spontaneous
  Country: US (occurrence: US)
  Receive Date: 20181017
  Receipt Date: 20181017
  Transmission Date: 20190205
  Serious: No
  Sender: FDA-Public Use
  Company Number: US-GLAXOSMITHKLINE-US2018184002

PATIENT
  Sex: Female

DRUGS (1)
  1. NICODERM CQ [Suspect]
     Active Substance: NICOTINE
     Indication: SMOKING CESSATION THERAPY
     Dosage: 21 MG, UNK
     Dates: end: 201810

REACTIONS (6)
  - Insomnia [Unknown]
  - Depression [Unknown]
  - Condition aggravated [Unknown]
  - Feeling hot [Unknown]
  - Anxiety [Unknown]
  - Hyperhidrosis [Unknown]
